FAERS Safety Report 8043184-9 (Version None)
Quarter: 2012Q1

REPORT INFORMATION
  Report Type: 
  Country: None (occurrence: None)
  Receive Date: 20120112
  Receipt Date: 20120109
  Transmission Date: 20120608
  Serious: Yes (Death, Other)
  Sender: FDA-Public Use
  Company Number: ES-ABBOTT-12P-144-0891594-00

PATIENT
  Age: 67 Year
  Sex: Female
  Weight: 118 kg

DRUGS (7)
  1. LEVOTHYROXINE SODIUM [Concomitant]
     Indication: HYPOTHYROIDISM
     Route: 048
  2. OMEPRAZOLE [Concomitant]
     Indication: PRODUCT USED FOR UNKNOWN INDICATION
     Route: 048
  3. METFORMIN HCL [Concomitant]
     Indication: TYPE 2 DIABETES MELLITUS
     Route: 048
  4. HUMIRA [Suspect]
     Indication: PSORIASIS
     Route: 058
     Dates: start: 20110504, end: 20110504
  5. HUMIRA [Suspect]
     Route: 058
     Dates: start: 20110511, end: 20110511
  6. HUMIRA [Suspect]
     Route: 058
  7. VALSARTAN [Concomitant]
     Indication: HYPERTENSION
     Route: 048

REACTIONS (6)
  - MESENTERIC LYMPHADENOPATHY [None]
  - METASTASES TO LUNG [None]
  - ABDOMINAL PAIN [None]
  - SPLENOMEGALY [None]
  - METASTASES TO BONE [None]
  - TRANSITIONAL CELL CARCINOMA [None]
